FAERS Safety Report 7157980-3 (Version None)
Quarter: 2010Q4

REPORT INFORMATION
  Report Type: 
  Country: None (occurrence: None)
  Receive Date: 20101130
  Receipt Date: 20101115
  Transmission Date: 20110411
  Serious: Yes (Hospitalization)
  Sender: FDA-Public Use
  Company Number: 2010S1000990

PATIENT
  Age: 77 Year
  Sex: Female

DRUGS (4)
  1. LIVALO [Suspect]
     Indication: HYPERLIPIDAEMIA
     Dosage: 2 MG; 1X; PO, 2 MG; 1X; PO
     Route: 048
     Dates: start: 20091105, end: 20100705
  2. LIVALO [Suspect]
     Indication: HYPERLIPIDAEMIA
     Dosage: 2 MG; 1X; PO, 2 MG; 1X; PO
     Route: 048
     Dates: start: 20100716
  3. ASPIRIN [Concomitant]
  4. TORSEMIDE [Concomitant]

REACTIONS (4)
  - ABDOMINAL PAIN [None]
  - COLITIS ISCHAEMIC [None]
  - COUGH [None]
  - HAEMATOCHEZIA [None]
